FAERS Safety Report 4295197-0 (Version None)
Quarter: 2004Q1

REPORT INFORMATION
  Report Type: 
  Country: None (occurrence: None)
  Receive Date: 20040213
  Receipt Date: 20040205
  Transmission Date: 20041129
  Serious: Yes (Death, Hospitalization)
  Sender: FDA-Public Use
  Company Number: 2004197753US

PATIENT
  Age: 52 Year
  Sex: Female

DRUGS (2)
  1. DEPO-PROVERA [Suspect]
     Dosage: EVERY 12 WEEKS, 1ST INJECTION;  EVERY 12 WEEKS, LAST INJECTION
     Dates: start: 19950518, end: 19950518
  2. DEPO-PROVERA [Suspect]
     Dosage: EVERY 12 WEEKS, 1ST INJECTION;  EVERY 12 WEEKS, LAST INJECTION
     Dates: start: 20010404, end: 20010404

REACTIONS (7)
  - ARTHRITIS [None]
  - DEEP VEIN THROMBOSIS [None]
  - EMBOLISM [None]
  - HILAR LYMPHADENOPATHY [None]
  - HISTOPLASMOSIS [None]
  - PULMONARY EMBOLISM [None]
  - PULMONARY GRANULOMA [None]
